FAERS Safety Report 20055818 (Version 1)
Quarter: 2021Q4

REPORT INFORMATION
  Report Type: Spontaneous
  Country: US (occurrence: US)
  Receive Date: 20211111
  Receipt Date: 20211111
  Transmission Date: 20220303
  Serious: Yes (Other)
  Sender: FDA-Public Use
  Company Number: US-drreddys-SPO/USA/21/0143605

PATIENT
  Age: 37 Year
  Sex: Male

DRUGS (2)
  1. ZENATANE [Suspect]
     Active Substance: ISOTRETINOIN
     Indication: Product used for unknown indication
     Dates: start: 20210831
  2. ZENATANE [Suspect]
     Active Substance: ISOTRETINOIN
     Dates: start: 20210831

REACTIONS (2)
  - Haematochezia [Unknown]
  - Abdominal pain upper [Unknown]
